FAERS Safety Report 5838479-0 (Version None)
Quarter: 2008Q3

REPORT INFORMATION
  Report Type: 
  Country: None (occurrence: None)
  Receive Date: 20080806
  Receipt Date: 20080731
  Transmission Date: 20090109
  Serious: Yes (Death)
  Sender: FDA-Public Use
  Company Number: 163-21880-08080001

PATIENT
  Age: 81 Year
  Sex: Female

DRUGS (2)
  1. REVLIMID [Suspect]
     Indication: MULTIPLE MYELOMA
     Dosage: 10 MG, 1 IN 1 D, ORAL 25 MG, DAILY, ORAL
     Route: 048
     Dates: start: 20071022, end: 20071101
  2. REVLIMID [Suspect]
     Indication: MULTIPLE MYELOMA
     Dosage: 10 MG, 1 IN 1 D, ORAL 25 MG, DAILY, ORAL
     Route: 048
     Dates: start: 20080103, end: 20080601

REACTIONS (7)
  - APHASIA [None]
  - DISEASE PROGRESSION [None]
  - FATIGUE [None]
  - LARYNGITIS [None]
  - MYALGIA [None]
  - OROPHARYNGEAL PAIN [None]
  - SYNCOPE [None]
